FAERS Safety Report 20867805 (Version 2)
Quarter: 2022Q3

REPORT INFORMATION
  Report Type: Spontaneous
  Country: US (occurrence: None)
  Receive Date: 20220524
  Receipt Date: 20220705
  Transmission Date: 20221026
  Serious: Yes (Death)
  Sender: FDA-Public Use
  Company Number: 2022A189440

PATIENT
  Age: 16418 Day
  Sex: Male
  Weight: 63.5 kg

DRUGS (1)
  1. TAGRISSO [Suspect]
     Active Substance: OSIMERTINIB
     Indication: Chronic myeloid leukaemia
     Route: 048
     Dates: start: 20200313

REACTIONS (3)
  - Death [Fatal]
  - Loss of consciousness [Unknown]
  - Pruritus [Unknown]

NARRATIVE: CASE EVENT DATE: 20220509
